FAERS Safety Report 18591276 (Version 3)
Quarter: 2021Q1

REPORT INFORMATION
  Report Type: Spontaneous
  Country: SK (occurrence: SK)
  Receive Date: 20201208
  Receipt Date: 20210119
  Transmission Date: 20210419
  Serious: Yes (Other)
  Sender: FDA-Public Use
  Company Number: NVSC2020SK326359

PATIENT
  Sex: Male

DRUGS (8)
  1. LITHIUM. [Suspect]
     Active Substance: LITHIUM
     Indication: BASEDOW^S DISEASE
     Dosage: UNK
     Route: 048
     Dates: end: 201910
  2. TACROLIMUS. [Suspect]
     Active Substance: TACROLIMUS
     Indication: PRODUCT USED FOR UNKNOWN INDICATION
     Dosage: UNK PULSE THERAPY WITH METHYLPREDNISOLONE
     Route: 065
  3. THIAMAZOLE [Suspect]
     Active Substance: METHIMAZOLE
     Indication: HYPERTHYROIDISM
     Dosage: 10 MG/DAY
     Route: 065
  4. CYCLOPHOSPHAMIDE. [Concomitant]
     Active Substance: CYCLOPHOSPHAMIDE
     Indication: PRODUCT USED FOR UNKNOWN INDICATION
     Dosage: UNK
     Route: 065
     Dates: start: 201811
  5. RITUXIMAB. [Suspect]
     Active Substance: RITUXIMAB
     Indication: ACUTE ON CHRONIC LIVER FAILURE
     Dosage: UNK
     Route: 065
  6. LITHIUM. [Suspect]
     Active Substance: LITHIUM
     Indication: HYPERTHYROIDISM
  7. THIAMAZOLE [Suspect]
     Active Substance: METHIMAZOLE
     Dosage: 30 MG, QD
     Route: 065
  8. METHYLPREDNISOLONE. [Suspect]
     Active Substance: METHYLPREDNISOLONE
     Indication: PRODUCT USED FOR UNKNOWN INDICATION
     Dosage: UNK PULSE THERAPY WITH TACROLIMUS
     Route: 065

REACTIONS (9)
  - Drug level abnormal [Unknown]
  - Disease recurrence [Unknown]
  - Toxicity to various agents [Recovered/Resolved]
  - Drug level increased [Unknown]
  - Contraindicated product administered [Unknown]
  - Renal failure [Recovering/Resolving]
  - Hyperthyroidism [Recovered/Resolved]
  - Off label use [Unknown]
  - Condition aggravated [Unknown]

NARRATIVE: CASE EVENT DATE: 201905
